FAERS Safety Report 9100296 (Version 2)
Quarter: 2014Q1

REPORT INFORMATION
  Report Type: Spontaneous
  Country: FR (occurrence: FR)
  Receive Date: 20130215
  Receipt Date: 20140121
  Transmission Date: 20141002
  Serious: Yes (Other)
  Sender: FDA-Public Use
  Company Number: FR-PFIZER INC-2013057239

PATIENT
  Age: 4 Year
  Sex: Female

DRUGS (2)
  1. ZITHROMAX [Suspect]
     Indication: AUTISM
     Dosage: 1 DOSE-WEIGHT PER DAY FOR 15 DAYS THEN COURSES OF 10 DAYS EVERY MONTH FOR 6 MONTHS
     Route: 048
     Dates: start: 201204, end: 20130108
  2. FLUVERMAL [Concomitant]
     Dosage: UNK

REACTIONS (2)
  - Eosinophilia [Not Recovered/Not Resolved]
  - Off label use [Recovered/Resolved]
